FAERS Safety Report 4837937-5 (Version None)
Quarter: 2005Q4

REPORT INFORMATION
  Report Type: 
  Country: None (occurrence: None)
  Receive Date: 20051123
  Receipt Date: 20051110
  Transmission Date: 20060501
  Serious: Yes (Death, Hospitalization)
  Sender: FDA-Public Use
  Company Number: 2005147757

PATIENT
  Age: 71 Year
  Sex: Female

DRUGS (8)
  1. PREDNISONE [Suspect]
     Indication: ESSENTIAL HYPERTENSION
     Dosage: 10 MG, ORAL
     Route: 048
     Dates: start: 20041220, end: 20050216
  2. OLMETEC (OLMESARTAN) [Suspect]
     Indication: HYPERTENSION
     Dosage: 10 MG (10 MG, 1 IN 1 D), ORAL
     Route: 048
     Dates: start: 20041220
  3. LOXONIN (LOXOPROFEN SODIUM) [Suspect]
     Indication: ILL-DEFINED DISORDER
     Dosage: 180 MG, ORAL
     Route: 048
  4. BUCILLAMINE (BUCILLAMINE) [Suspect]
     Indication: ILL-DEFINED DISORDER
     Dosage: 200 MG, ORAL
  5. FURSULTIAMINE (FURSULTIAMINE) [Concomitant]
  6. ALDIOXA (ALDIOXA) [Concomitant]
  7. ETHYL ICOSAPENTATE (ETHYL ICOSAPENTATE) [Concomitant]
  8. BERAPROST SODIUM (BERAPROST SODIUM) [Concomitant]

REACTIONS (5)
  - LEG AMPUTATION [None]
  - NECROSIS [None]
  - PAIN IN EXTREMITY [None]
  - POSTOPERATIVE INFECTION [None]
  - SKIN ULCER [None]
